FAERS Safety Report 9801461 (Version 1)
Quarter: 2014Q1

REPORT INFORMATION
  Report Type: Spontaneous
  Country: GB (occurrence: GB)
  Receive Date: 20140107
  Receipt Date: 20140107
  Transmission Date: 20141002
  Serious: Yes (Hospitalization)
  Sender: FDA-Public Use
  Company Number: GB-WATSON-2013-23956

PATIENT
  Age: 39 Year
  Sex: Female
  Weight: 65 kg

DRUGS (2)
  1. CITALOPRAM (UNKNOWN) [Suspect]
     Indication: DEPRESSION
     Dosage: 40 MG, DAILY
     Route: 048
     Dates: start: 201211
  2. INFLIXIMAB [Suspect]
     Indication: PSORIASIS
     Dosage: 5 MG/KG, 1/8 WEEKS
     Route: 042
     Dates: start: 201104

REACTIONS (6)
  - Splenic rupture [Recovering/Resolving]
  - Vomiting [Unknown]
  - Chills [Unknown]
  - Urosepsis [Unknown]
  - Abdominal distension [Unknown]
  - Peritonitis [Unknown]
